FAERS Safety Report 6467846-X (Version None)
Quarter: 2009Q4

REPORT INFORMATION
  Report Type: 
  Country: None (occurrence: None)
  Receive Date: 20091127
  Receipt Date: 20091112
  Transmission Date: 20100525
  Serious: Yes (Disabling, Other)
  Sender: FDA-Public Use
  Company Number: AUR-APL-2009-01274

PATIENT
  Age: 36 Year
  Weight: 73 kg

DRUGS (2)
  1. FLUOXETINE [Suspect]
     Indication: DEPRESSION
     Dosage: 20MG, ORAL
     Route: 048
     Dates: start: 20090219
  2. LEVOTHYROXINE SODIUM [Concomitant]

REACTIONS (2)
  - BURNING SENSATION [None]
  - HYPOAESTHESIA [None]
